FAERS Safety Report 10406654 (Version 1)
Quarter: 2014Q3

REPORT INFORMATION
  Report Type: Report from Study
  Country: BR (occurrence: BR)
  Receive Date: 20140825
  Receipt Date: 20140825
  Transmission Date: 20150326
  Serious: Yes (Other)
  Sender: FDA-Public Use
  Company Number: BR-ABBVIE-14K-020-1273198-00

PATIENT
  Age: 39 Year
  Sex: Female
  Weight: 85 kg

DRUGS (9)
  1. ARAVA [Concomitant]
     Active Substance: LEFLUNOMIDE
     Indication: ARTHRITIS
     Route: 048
  2. PRESSAT [Concomitant]
     Active Substance: AMLODIPINE BESYLATE
     Indication: HYPERTENSION
     Route: 048
  3. LACTOSE [Suspect]
     Active Substance: LACTOSE
     Indication: PRODUCT USED FOR UNKNOWN INDICATION
  4. MIOSAN [Concomitant]
     Active Substance: CYCLOBENZAPRINE
     Indication: ANTIINFLAMMATORY THERAPY
     Route: 048
     Dates: start: 20140216
  5. DEFLAZACORT [Concomitant]
     Active Substance: DEFLAZACORT
     Indication: ARTHRITIS
     Route: 048
  6. HUMIRA [Suspect]
     Active Substance: ADALIMUMAB
     Indication: RHEUMATOID ARTHRITIS
     Route: 058
  7. MELOXICAM. [Concomitant]
     Active Substance: MELOXICAM
     Indication: ANTIINFLAMMATORY THERAPY
     Route: 048
     Dates: start: 201406
  8. HUMIRA [Suspect]
     Active Substance: ADALIMUMAB
     Route: 058
     Dates: start: 201404
  9. MICARDIS [Concomitant]
     Active Substance: TELMISARTAN
     Indication: HYPERTENSION
     Dosage: FORM STRENGTH 80/12 (UNITS NOT PROVIDED)
     Route: 048

REACTIONS (8)
  - Pain [Recovered/Resolved]
  - Hepatic steatosis [Recovered/Resolved]
  - Overweight [Unknown]
  - Lactose intolerance [Recovering/Resolving]
  - Tendonitis [Recovering/Resolving]
  - Intervertebral disc protrusion [Unknown]
  - Liver disorder [Recovered/Resolved]
  - Diarrhoea [Unknown]

NARRATIVE: CASE EVENT DATE: 201201
